FAERS Safety Report 9828540 (Version 2)
Quarter: 2014Q2

REPORT INFORMATION
  Report Type: Spontaneous
  Country: IT (occurrence: IT)
  Receive Date: 20140117
  Receipt Date: 20140410
  Transmission Date: 20141212
  Serious: Yes (Hospitalization)
  Sender: FDA-Public Use
  Company Number: IT-PFIZER INC-2014016276

PATIENT
  Age: 55 Year
  Sex: Male

DRUGS (4)
  1. SERTRALINE HCL [Suspect]
     Indication: DEPRESSION
     Dosage: 50 MG, DAILY
     Route: 048
  2. SERTRALINE HCL [Suspect]
     Dosage: 250 MG, TOTAL DOSAGE
     Dates: start: 20140110, end: 20140110
  3. RIVOTRIL [Suspect]
     Indication: DEPRESSION
     Dosage: 0.5 MG, DAILY
     Route: 048
  4. RIVOTRIL [Suspect]
     Dosage: 10 DF, TOTAL DOSAGE
     Dates: start: 20140110, end: 20140110

REACTIONS (4)
  - Bradykinesia [Recovering/Resolving]
  - Intentional self-injury [Recovering/Resolving]
  - Bradyphrenia [Recovering/Resolving]
  - Drug abuse [Recovering/Resolving]
